FAERS Safety Report 6671199-1 (Version None)
Quarter: 2010Q2

REPORT INFORMATION
  Report Type: 
  Country: None (occurrence: None)
  Receive Date: 20100407
  Receipt Date: 20100329
  Transmission Date: 20101027
  Serious: Yes (Hospitalization)
  Sender: FDA-Public Use
  Company Number: FR-ELI_LILLY_AND_COMPANY-FR201003007600

PATIENT
  Sex: Male

DRUGS (15)
  1. HUMULIN N [Suspect]
     Dosage: 36 IU, EACH MORNING
     Route: 058
     Dates: start: 20050101, end: 20100201
  2. HUMULIN N [Suspect]
     Dosage: 6-8 IU , EACH EVENING
     Route: 058
     Dates: start: 20050101, end: 20100201
  3. HUMULIN N [Suspect]
     Dosage: 22 IU, EACH MORNING
     Route: 065
     Dates: start: 20100201
  4. HUMULIN N [Suspect]
     Dosage: 10 IU, EACH EVENING
     Route: 065
     Dates: start: 20100201
  5. ACTRAPID                           /00030501/ [Concomitant]
     Dosage: 8 IU, EACH MORNING
     Route: 058
     Dates: start: 20050101, end: 20100223
  6. ATACAND [Concomitant]
     Dosage: 16 MG, EACH MORNING
     Route: 065
  7. PRAXINOR [Concomitant]
     Dosage: 1 D/F, EACH MORNING
     Route: 065
  8. PRAXINOR [Concomitant]
     Dosage: 1 D/F, EACH EVENING
     Route: 065
  9. AMLOR [Concomitant]
     Dosage: 5 MG, EACH EVENING
     Route: 065
  10. PLAVIX [Concomitant]
     Dosage: 1 D/F, EACH MORNING
     Route: 065
  11. LASIX [Concomitant]
     Dosage: 40 MG, EACH MORNING
     Route: 065
  12. NEXIUM [Concomitant]
     Dosage: 20 MG, EACH EVENING
     Route: 065
  13. TAHOR [Concomitant]
     Dosage: 10 MG, EACH EVENING
     Route: 065
  14. FORLAX [Concomitant]
     Dosage: 2 D/F, EACH MORNING
     Route: 065
  15. ALCOHOL [Concomitant]

REACTIONS (5)
  - BLOOD GLUCOSE FLUCTUATION [None]
  - DIABETES MELLITUS INADEQUATE CONTROL [None]
  - HYPERSOMNIA [None]
  - HYPOGLYCAEMIC COMA [None]
  - HYPOPHAGIA [None]
